FAERS Safety Report 18864903 (Version 1)
Quarter: 2021Q1

REPORT INFORMATION
  Report Type: Spontaneous
  Country: US (occurrence: US)
  Receive Date: 20210208
  Receipt Date: 20210208
  Transmission Date: 20210420
  Serious: Yes (Hospitalization)
  Sender: FDA-Public Use
  Company Number: None

PATIENT
  Age: 49 Year
  Sex: Male
  Weight: 171 kg

DRUGS (1)
  1. SWAG HEMP INFUSED NATURAL CBD GUMMIES [Suspect]
     Active Substance: CANNABIDIOL\HERBALS
     Indication: PAIN
     Dosage: ?          QUANTITY:1 GUMMIES;?
     Dates: start: 20210130, end: 20210202

REACTIONS (5)
  - General physical condition abnormal [None]
  - Feeling abnormal [None]
  - Speech disorder [None]
  - Drug abuse [None]
  - Product tampering [None]

NARRATIVE: CASE EVENT DATE: 20210202
